FAERS Safety Report 6788019-7 (Version None)
Quarter: 2010Q2

REPORT INFORMATION
  Report Type: 
  Country: None (occurrence: None)
  Receive Date: 20100623
  Receipt Date: 20071130
  Transmission Date: 20101027
  Serious: No
  Sender: FDA-Public Use
  Company Number: US-PFIZER INC-2007101157

PATIENT
  Age: 24 Year
  Sex: Female

DRUGS (2)
  1. SOLU-MEDROL [Suspect]
     Route: 042
     Dates: start: 20071001
  2. REBIF [Concomitant]
     Indication: MULTIPLE SCLEROSIS

REACTIONS (4)
  - DIZZINESS [None]
  - HYPERHIDROSIS [None]
  - TREMOR [None]
  - VOMITING [None]
